FAERS Safety Report 6214791-0 (Version None)
Quarter: 2009Q2

REPORT INFORMATION
  Report Type: 
  Country: None (occurrence: None)
  Receive Date: 20090604
  Receipt Date: 20090528
  Transmission Date: 20091009
  Serious: Yes (Death, Hospitalization)
  Sender: FDA-Public Use
  Company Number: A0788614A

PATIENT
  Sex: Female

DRUGS (5)
  1. SERETIDE [Suspect]
     Indication: ASTHMA
     Route: 055
     Dates: start: 20060101, end: 20090504
  2. SERTRALINE HCL [Concomitant]
     Dosage: 1TAB PER DAY
     Route: 048
     Dates: start: 20060101, end: 20090504
  3. ATENOLOL [Concomitant]
     Dosage: 1TAB TWICE PER DAY
     Route: 048
     Dates: start: 20070101, end: 20090504
  4. OMEPRAZOLE [Concomitant]
     Dosage: 1TAB PER DAY
     Route: 048
     Dates: start: 20050101, end: 20090504
  5. ALPRAZOLAM [Concomitant]
     Dosage: 1TAB PER DAY
     Route: 048

REACTIONS (2)
  - ADVERSE EVENT [None]
  - DEATH [None]
